FAERS Safety Report 26024666 (Version 1)
Quarter: 2025Q4

REPORT INFORMATION
  Report Type: Spontaneous
  Country: MO (occurrence: MO)
  Receive Date: 20251111
  Receipt Date: 20251111
  Transmission Date: 20260117
  Serious: Yes (Other)
  Sender: Phathom Pharmaceuticals
  Company Number: MO-PHATHOM PHARMACEUTICALS INC.-2025PHT03245

PATIENT

DRUGS (1)
  1. VONOPRAZAN [Suspect]
     Active Substance: VONOPRAZAN
     Indication: Gastrooesophageal reflux disease
     Dosage: UNK
     Route: 065

REACTIONS (2)
  - Internal haemorrhage [Recovering/Resolving]
  - Incorrect product administration duration [Unknown]
